FAERS Safety Report 5005757-7 (Version None)
Quarter: 2006Q2

REPORT INFORMATION
  Report Type: 
  Country: None (occurrence: None)
  Receive Date: 20060518
  Receipt Date: 20060421
  Transmission Date: 20061013
  Serious: Yes (Other)
  Sender: FDA-Public Use
  Company Number: JP-BRISTOL-MYERS SQUIBB COMPANY-13360581

PATIENT
  Age: 67 Year
  Sex: Male

DRUGS (5)
  1. IFOMIDE [Suspect]
     Indication: BONE SARCOMA
     Route: 042
     Dates: start: 20060127, end: 20060415
  2. UROMITEXAN [Concomitant]
     Indication: PROPHYLAXIS
     Route: 042
     Dates: start: 20060221, end: 20060226
  3. NEUTROGIN [Concomitant]
     Indication: WHITE BLOOD CELL COUNT DECREASED
     Route: 058
     Dates: start: 20060325, end: 20060328
  4. GASTER D [Concomitant]
     Indication: GASTRIC ULCER
     Route: 048
     Dates: start: 20060328
  5. MAGNESIUM OXIDE [Concomitant]
     Indication: CONSTIPATION
     Route: 048
     Dates: start: 20060328

REACTIONS (2)
  - HALLUCINATION [None]
  - HYPOAESTHESIA [None]
